FAERS Safety Report 20631368 (Version 1)
Quarter: 2022Q1

REPORT INFORMATION
  Report Type: Spontaneous
  Country: US (occurrence: None)
  Receive Date: 20220323
  Receipt Date: 20220323
  Transmission Date: 20220423
  Serious: No
  Sender: FDA-Public Use
  Company Number: None

PATIENT
  Age: 55 Year
  Sex: Female
  Weight: 72 kg

DRUGS (18)
  1. CYCLOPHOSPHAMIDE [Suspect]
     Active Substance: CYCLOPHOSPHAMIDE
     Indication: Breast cancer female
     Dosage: FREQUENCY : EVERY OTHER WEEK;?
     Route: 041
  2. DOXORUBICIN [Suspect]
     Active Substance: DOXORUBICIN
     Indication: Breast cancer female
     Dosage: FREQUENCY : EVERY OTHER WEEK;?
     Route: 041
  3. APREPITANT [Concomitant]
     Active Substance: APREPITANT
  4. NEULASTA [Concomitant]
     Active Substance: PEGFILGRASTIM
  5. ACETAMINOPHEN [Concomitant]
     Active Substance: ACETAMINOPHEN
  6. ANASTROZOLE [Concomitant]
     Active Substance: ANASTROZOLE
  7. CALCIUM\VITAMIN D [Concomitant]
     Active Substance: CALCIUM\VITAMIN D
  8. ENOXAPARIN [Concomitant]
     Active Substance: ENOXAPARIN
  9. ERGOCALCIFEROL [Concomitant]
     Active Substance: ERGOCALCIFEROL
  10. GABAPENTIN [Concomitant]
     Active Substance: GABAPENTIN
  11. MIRTAZAPINE [Concomitant]
     Active Substance: MIRTAZAPINE
  12. MORPHINE SULFATE [Concomitant]
     Active Substance: MORPHINE SULFATE
  13. OXYCODONE [Concomitant]
     Active Substance: OXYCODONE
  14. PERCOCET [Concomitant]
     Active Substance: ACETAMINOPHEN\OXYCODONE HYDROCHLORIDE
  15. MIRALAX [Concomitant]
     Active Substance: POLYETHYLENE GLYCOL 3350
  16. SENNA [Concomitant]
     Active Substance: SENNA LEAF\SENNOSIDES\SENNOSIDES A AND B
  17. TRAMADOL [Concomitant]
     Active Substance: TRAMADOL
  18. PACLITAXEL [Suspect]
     Active Substance: PACLITAXEL

REACTIONS (2)
  - White blood cell count decreased [None]
  - Malaise [None]

NARRATIVE: CASE EVENT DATE: 20220314
